FAERS Safety Report 4401619-4 (Version None)
Quarter: 2004Q3

REPORT INFORMATION
  Report Type: 
  Country: None (occurrence: None)
  Receive Date: 20040714
  Receipt Date: 20040706
  Transmission Date: 20050211
  Serious: Yes (Other)
  Sender: FDA-Public Use
  Company Number: K200400983

PATIENT
  Age: 69 Year
  Sex: Female
  Weight: 49.4 kg

DRUGS (8)
  1. LEVOXYL [Suspect]
     Indication: HYPOTHYROIDISM
     Dosage: 75 MCG, QD, ORAL
     Route: 048
     Dates: start: 20000101
  2. ALLEGRA [Concomitant]
  3. ASPIRIN [Concomitant]
  4. FOSAMAX [Concomitant]
  5. CALCIUM (CALCIUM) [Concomitant]
  6. MIACALCIN [Concomitant]
  7. TAGAMET [Concomitant]
  8. MAALOX (MAGNESIUM HYDROXIDE, ALUMINIUM HYDROXIDE GEL) [Concomitant]

REACTIONS (7)
  - BURNING SENSATION [None]
  - DRY MOUTH [None]
  - FUNGAL INFECTION [None]
  - GLOSSODYNIA [None]
  - PHARMACEUTICAL PRODUCT COMPLAINT [None]
  - TONGUE COATED [None]
  - TONGUE DISORDER [None]
